FAERS Safety Report 18548684 (Version 2)
Quarter: 2020Q4

REPORT INFORMATION
  Report Type: Spontaneous
  Country: PL (occurrence: PL)
  Receive Date: 20201126
  Receipt Date: 20201214
  Transmission Date: 20210114
  Serious: Yes (Other)
  Sender: FDA-Public Use
  Company Number: PL-AUROBINDO-AUR-APL-2019-033998

PATIENT
  Age: 33 Year
  Sex: Female

DRUGS (4)
  1. DROTAVERINE [Suspect]
     Active Substance: DROTAVERINE
     Dosage: UNK
  2. DROTAVERINE [Suspect]
     Active Substance: DROTAVERINE
     Indication: ABDOMINAL PAIN LOWER
     Dosage: UNK
     Route: 065
  3. MAGNESIUM [Suspect]
     Active Substance: MAGNESIUM
     Indication: ABDOMINAL PAIN LOWER
     Dosage: UNK
     Route: 065
  4. PARACETAMOL [Suspect]
     Active Substance: ACETAMINOPHEN
     Indication: ABDOMINAL PAIN LOWER
     Dosage: UNK
     Route: 065

REACTIONS (2)
  - Premature labour [Unknown]
  - Exposure during pregnancy [Unknown]
